FAERS Safety Report 5525890-0 (Version None)
Quarter: 2007Q4

REPORT INFORMATION
  Report Type: 
  Country: None (occurrence: None)
  Receive Date: 20071126
  Receipt Date: 20071114
  Transmission Date: 20080405
  Serious: Yes (Other)
  Sender: FDA-Public Use
  Company Number: US-PFIZER INC-2007096349

PATIENT
  Sex: Male
  Weight: 74.8 kg

DRUGS (2)
  1. VIAGRA [Suspect]
  2. VITAMINS [Concomitant]

REACTIONS (15)
  - ASTHENIA [None]
  - DISTURBANCE IN ATTENTION [None]
  - DIZZINESS [None]
  - EAR DISCOMFORT [None]
  - ERYTHEMA [None]
  - FATIGUE [None]
  - FEELING ABNORMAL [None]
  - IMPAIRED DRIVING ABILITY [None]
  - IMPAIRED WORK ABILITY [None]
  - INSOMNIA [None]
  - NASOPHARYNGITIS [None]
  - NERVOUS SYSTEM DISORDER [None]
  - ROAD TRAFFIC ACCIDENT [None]
  - STRESS [None]
  - TINNITUS [None]
